FAERS Safety Report 14599896 (Version 2)
Quarter: 2022Q1

REPORT INFORMATION
  Report Type: Other
  Country: DK (occurrence: DK)
  Receive Date: 20180305
  Receipt Date: 20220218
  Transmission Date: 20220424
  Serious: Yes (Disabling)
  Sender: FDA-Public Use
  Company Number: DK-CELLTRION INC.-2018DK018219

PATIENT

DRUGS (1)
  1. INFLIXIMAB [Suspect]
     Active Substance: INFLIXIMAB
     Indication: Rheumatoid arthritis
     Dosage: 250 MG (PHARMACEUTICAL DOSE FORM: 356; DOSAGE: WEEK 0, 2, 6, +8, STRENGTH: 100 MG)
     Route: 042
     Dates: start: 20161025, end: 20161125

REACTIONS (20)
  - Swollen tongue [Unknown]
  - VIIIth nerve injury [Unknown]
  - Executive dysfunction [Unknown]
  - Learning disorder [Unknown]
  - Disturbance in attention [Unknown]
  - Tinnitus [Unknown]
  - Illusion [Unknown]
  - Meningeal thickening [Unknown]
  - Hypoacusis [Unknown]
  - Hyperacusis [Unknown]
  - Vestibular disorder [Recovered/Resolved]
  - Balance disorder [Unknown]
  - Cognitive disorder [Unknown]
  - Coordination abnormal [Unknown]
  - Dizziness [Unknown]
  - Headache [Unknown]
  - Memory impairment [Unknown]
  - Mouth swelling [Unknown]
  - Pain in jaw [Unknown]
  - Visual impairment [Unknown]

NARRATIVE: CASE EVENT DATE: 20160101
